FAERS Safety Report 7779219-8 (Version None)
Quarter: 2011Q3

REPORT INFORMATION
  Report Type: 
  Country: None (occurrence: None)
  Receive Date: 20110926
  Receipt Date: 20110915
  Transmission Date: 20111222
  Serious: Yes (Death, Hospitalization)
  Sender: FDA-Public Use
  Company Number: CM-GILEAD-2011-0043929

PATIENT

DRUGS (1)
  1. EMTRICITABINE/TENOFOVIR DISOPROXIL FUMARATE [Suspect]
     Indication: HIV INFECTION

REACTIONS (4)
  - SEPSIS [None]
  - ANAEMIA [None]
  - DECUBITUS ULCER [None]
  - PULMONARY TUBERCULOSIS [None]
